FAERS Safety Report 24450291 (Version 2)
Quarter: 2024Q4

REPORT INFORMATION
  Report Type: Report from Study
  Country: US (occurrence: US)
  Receive Date: 20241017
  Receipt Date: 20241206
  Transmission Date: 20250114
  Serious: Yes (Hospitalization, Other)
  Sender: ABBVIE
  Company Number: US-ABBVIE-5964375

PATIENT
  Age: 61 Year
  Sex: Female

DRUGS (1)
  1. HUMIRA [Suspect]
     Active Substance: ADALIMUMAB
     Indication: Hidradenitis
     Dosage: CITRATE FREE
     Route: 058
     Dates: start: 202403

REACTIONS (7)
  - Gallbladder operation [Recovering/Resolving]
  - Headache [Not Recovered/Not Resolved]
  - Polypectomy [Unknown]
  - Hidradenitis [Recovered/Resolved]
  - Ulcer [Recovering/Resolving]
  - Poor quality sleep [Unknown]
  - Back pain [Not Recovered/Not Resolved]

NARRATIVE: CASE EVENT DATE: 20240101
